FAERS Safety Report 16435851 (Version 1)
Quarter: 2019Q2

REPORT INFORMATION
  Report Type: Spontaneous
  Country: AU (occurrence: AU)
  Receive Date: 20190614
  Receipt Date: 20190614
  Transmission Date: 20190711
  Serious: Yes (Other)
  Sender: FDA-Public Use
  Company Number: AU-MYLANLABS-2019M1056358

PATIENT
  Age: 4 Year
  Sex: Female

DRUGS (5)
  1. PREDNISONE. [Concomitant]
     Active Substance: PREDNISONE
     Indication: ANAPHYLACTIC REACTION
     Dosage: RECEIVED SINGLE ORAL DOSE
     Route: 048
  2. PIMECROLIMUS. [Concomitant]
     Active Substance: PIMECROLIMUS
     Indication: PRODUCT USED FOR UNKNOWN INDICATION
     Route: 061
  3. METHYLPREDNISOLONE. [Suspect]
     Active Substance: METHYLPREDNISOLONE
     Indication: DERMATITIS ATOPIC
     Dosage: UP TO 15G PER WEEK TO HER FACE EVERY ~3 DAYS
     Route: 061
  4. HYDROCORTISONE. [Suspect]
     Active Substance: HYDROCORTISONE
     Indication: DERMATITIS ATOPIC
     Route: 061
  5. METHYLPREDNISOLONE. [Suspect]
     Active Substance: METHYLPREDNISOLONE
     Dosage: ADDITIONALLY, SHE UNDERWENT 3 TIMES PER DAY WET WRAPS WITH METHYLPREDNISOLONE 0.1% FATTY OINTMENT...
     Route: 061

REACTIONS (4)
  - Viral infection [Unknown]
  - Drug ineffective [Unknown]
  - Steroid withdrawal syndrome [Recovering/Resolving]
  - Blister [Recovered/Resolved]
